FAERS Safety Report 5566207-5 (Version None)
Quarter: 2007Q4

REPORT INFORMATION
  Report Type: 
  Country: None (occurrence: None)
  Receive Date: 20071219
  Receipt Date: 20070731
  Transmission Date: 20080405
  Serious: No
  Sender: FDA-Public Use
  Company Number: US-KINGPHARMUSA00001-K200700965

PATIENT

DRUGS (5)
  1. APLISOL [Suspect]
     Indication: TUBERCULIN TEST
     Dosage: .1 ML, SINGLE
     Route: 031
     Dates: start: 20070731, end: 20070731
  2. RISPERDAL [Concomitant]
  3. ZYRTEC [Concomitant]
  4. GUAIFENESIN [Concomitant]
  5. GLYCOLAX [Concomitant]

REACTIONS (2)
  - ACCIDENTAL EXPOSURE [None]
  - EXPIRED DRUG ADMINISTERED [None]
